FAERS Safety Report 20316677 (Version 1)
Quarter: 2022Q1

REPORT INFORMATION
  Report Type: Spontaneous
  Country: US (occurrence: US)
  Receive Date: 20220110
  Receipt Date: 20220110
  Transmission Date: 20220424
  Serious: Yes (Other)
  Sender: FDA-Public Use
  Company Number: US-WOCKHARDT BIO AG-2021WBA000029

PATIENT
  Age: 51 Year
  Sex: Male

DRUGS (2)
  1. FLUTICASONE [Suspect]
     Active Substance: FLUTICASONE
     Indication: Chronic rhinosinusitis without nasal polyps
     Route: 045
  2. RITONAVIR [Suspect]
     Active Substance: RITONAVIR
     Indication: HIV infection
     Route: 065

REACTIONS (3)
  - Osteonecrosis [Recovered/Resolved]
  - Cushing^s syndrome [Recovered/Resolved]
  - Potentiating drug interaction [Unknown]
